FAERS Safety Report 15760729 (Version 1)
Quarter: 2018Q4

REPORT INFORMATION
  Report Type: Spontaneous
  Country: US (occurrence: US)
  Receive Date: 20181226
  Receipt Date: 20181226
  Transmission Date: 20190205
  Serious: No
  Sender: FDA-Public Use
  Company Number: US-PFIZER INC-2018340883

PATIENT
  Age: 71 Year
  Sex: Female
  Weight: 52.16 kg

DRUGS (2)
  1. XELJANZ [Suspect]
     Active Substance: TOFACITINIB CITRATE
     Indication: COLITIS ULCERATIVE
  2. XELJANZ [Suspect]
     Active Substance: TOFACITINIB CITRATE
     Indication: WEIGHT DECREASED
     Dosage: 5 MG, 2X/DAY (10 MG PO)
     Route: 048

REACTIONS (1)
  - Drug ineffective [Unknown]
